FAERS Safety Report 20600259 (Version 10)
Quarter: 2024Q2

REPORT INFORMATION
  Report Type: Other
  Country: DE (occurrence: None)
  Receive Date: 20220316
  Receipt Date: 20240402
  Transmission Date: 20240715
  Serious: No
  Sender: FDA-Public Use
  Company Number: DE-ROCHE-2992820

PATIENT
  Age: 37 Year
  Sex: Female

DRUGS (9)
  1. RITUXIMAB [Suspect]
     Active Substance: RITUXIMAB
     Indication: Neuromyelitis optica spectrum disorder
     Dosage: RECEIVED SUBSEQUENT DOSES IN /DEC/2017 14 DAYS APART, 31/OCT/2018 TO 15/NOV/2018, 16/JUL/2019 TO 29/
     Route: 042
     Dates: start: 20160301, end: 20160315
  2. RITUXIMAB [Suspect]
     Active Substance: RITUXIMAB
     Route: 042
     Dates: start: 20220609
  3. RITUXIMAB [Suspect]
     Active Substance: RITUXIMAB
     Route: 042
     Dates: start: 202304
  4. ENSPRYNG [Suspect]
     Active Substance: SATRALIZUMAB-MWGE
     Indication: Neuromyelitis optica spectrum disorder
     Route: 042
     Dates: start: 20160301
  5. RIZATRIPTAN [Concomitant]
     Active Substance: RIZATRIPTAN
     Indication: Migraine
     Dates: start: 20160301
  6. DALFAMPRIDINE [Concomitant]
     Active Substance: DALFAMPRIDINE
  7. PROPRANOLOL HYDROCHLORIDE [Concomitant]
     Active Substance: PROPRANOLOL HYDROCHLORIDE
  8. TIZANIDINE [Concomitant]
     Active Substance: TIZANIDINE
  9. IBUPROFEN [Concomitant]
     Active Substance: IBUPROFEN

REACTIONS (20)
  - Off label use [Unknown]
  - Migraine [Recovering/Resolving]
  - Muscular weakness [Recovering/Resolving]
  - Peroneal nerve palsy [Recovered/Resolved]
  - Asthenia [Recovering/Resolving]
  - Blood immunoglobulin G decreased [Not Recovered/Not Resolved]
  - B-lymphocyte count decreased [Recovered/Resolved]
  - CD19 lymphocytes increased [Recovered/Resolved]
  - Muscle spasticity [Recovering/Resolving]
  - Nasopharyngitis [Recovered/Resolved]
  - Alopecia [Not Recovered/Not Resolved]
  - Madarosis [Recovered/Resolved]
  - Infection susceptibility increased [Not Recovered/Not Resolved]
  - Sensitive skin [Recovered/Resolved]
  - Dry skin [Recovered/Resolved]
  - Polyp [Not Recovered/Not Resolved]
  - Ill-defined disorder [Not Recovered/Not Resolved]
  - Deposit eye [Not Recovered/Not Resolved]
  - Nasal congestion [Not Recovered/Not Resolved]
  - Aphonia [Not Recovered/Not Resolved]

NARRATIVE: CASE EVENT DATE: 20160301
